FAERS Safety Report 8285107-3 (Version None)
Quarter: 2012Q2

REPORT INFORMATION
  Report Type: 
  Country: None (occurrence: None)
  Receive Date: 20120413
  Receipt Date: 20110623
  Transmission Date: 20120825
  Serious: No
  Sender: FDA-Public Use
  Company Number: US-ASTRAZENECA-2011SE37998

PATIENT
  Sex: Female

DRUGS (8)
  1. BACTRIM [Concomitant]
  2. NEXIUM [Suspect]
     Route: 048
     Dates: start: 20100824
  3. EFFEXOR XR [Concomitant]
  4. INDOMETHACIN [Concomitant]
  5. ASPIRIN [Concomitant]
  6. HYZAAR [Concomitant]
  7. TRAMADOL HCL [Concomitant]
  8. KEFLEX [Concomitant]

REACTIONS (3)
  - SOFT TISSUE INFECTION [None]
  - SKIN INFECTION [None]
  - HYPERCHOLESTEROLAEMIA [None]
